FAERS Safety Report 21358578 (Version 1)
Quarter: 2022Q3

REPORT INFORMATION
  Report Type: Spontaneous
  Country: US (occurrence: None)
  Receive Date: 20220920
  Receipt Date: 20220920
  Transmission Date: 20221026
  Serious: No
  Sender: FDA-Public Use
  Company Number: None

PATIENT
  Age: 87 Year
  Sex: Male
  Weight: 82.1 kg

DRUGS (16)
  1. ABIRATERONE [Suspect]
     Active Substance: ABIRATERONE
     Indication: Prostate cancer
     Dosage: FREQUENCY : DAILY;?
     Route: 048
  2. ASPIRIN [Concomitant]
  3. ATORVASTATIN [Concomitant]
  4. CLOPIDOGREL [Concomitant]
  5. CLOTRIMAZOLE [Concomitant]
  6. GLIPIZIDE-METFORMIN [Concomitant]
  7. JANUVIA [Concomitant]
  8. LANTUS [Concomitant]
  9. LUPRON [Concomitant]
  10. METOPROLOL [Concomitant]
  11. NITROGLYVERIN [Concomitant]
  12. OFLOXACIN [Concomitant]
  13. OMEPRAZOLE [Concomitant]
  14. PREDNISONE [Concomitant]
  15. RAMIPRIL [Concomitant]
  16. REPAGLINIDE [Concomitant]

REACTIONS (1)
  - SARS-CoV-2 test positive [None]
